FAERS Safety Report 6896905-2 (Version None)
Quarter: 2010Q3

REPORT INFORMATION
  Report Type: 
  Country: None (occurrence: None)
  Receive Date: 20100802
  Receipt Date: 20070212
  Transmission Date: 20110219
  Serious: No
  Sender: FDA-Public Use
  Company Number: US-PFIZER INC-2007012336

PATIENT
  Sex: Male
  Weight: 99.3 kg

DRUGS (16)
  1. LYRICA [Suspect]
     Dates: end: 20070201
  2. ASTELIN [Concomitant]
  3. NASONEX [Concomitant]
  4. ALPHAGAN [Concomitant]
  5. CRESTOR [Concomitant]
  6. TAMSULOSIN HYDROCHLORIDE [Concomitant]
  7. NORVASC [Concomitant]
  8. TOPROL-XL [Concomitant]
  9. ALLOPURINOL [Concomitant]
  10. ZOLOFT [Concomitant]
  11. MONTELUKAST SODIUM [Concomitant]
  12. NEXIUM [Concomitant]
  13. OMACOR [Concomitant]
  14. HYDROMORPHONE [Concomitant]
  15. PLAVIX [Concomitant]
  16. ACETYLSALICYLIC ACID SRT [Concomitant]

REACTIONS (2)
  - BURNING SENSATION [None]
  - INSOMNIA [None]
